FAERS Safety Report 23190201 (Version 1)
Quarter: 2023Q4

REPORT INFORMATION
  Report Type: Spontaneous
  Country: US (occurrence: US)
  Receive Date: 20231116
  Receipt Date: 20231116
  Transmission Date: 20240110
  Serious: Yes (Other)
  Sender: FDA-Public Use
  Company Number: US-APOTEX-2023AP016506

PATIENT
  Age: 48 Year
  Sex: Female

DRUGS (12)
  1. TEMOZOLOMIDE [Suspect]
     Active Substance: TEMOZOLOMIDE
     Indication: Isocitrate dehydrogenase gene mutation
     Dosage: 50 MILLIGRAM/SQ. METER, QD (THERAPY DURATION: 8.8 MONTHS)
     Route: 065
  2. TEMOZOLOMIDE [Suspect]
     Active Substance: TEMOZOLOMIDE
     Indication: Oligodendroglioma
  3. OLAPARIB [Suspect]
     Active Substance: OLAPARIB
     Indication: Isocitrate dehydrogenase gene mutation
     Dosage: 150 MILLIGRAM, T.I.W (THERAPY DURATION: 8.8 MONTHS)
     Route: 065
  4. OLAPARIB [Suspect]
     Active Substance: OLAPARIB
     Indication: Oligodendroglioma
  5. PROCARBAZINE [Suspect]
     Active Substance: PROCARBAZINE
     Indication: Isocitrate dehydrogenase gene mutation
     Dosage: UNK (THERAPY DURATION: 8.8 MONTHS)
     Route: 065
  6. PROCARBAZINE [Suspect]
     Active Substance: PROCARBAZINE
     Indication: Oligodendroglioma
  7. LOMUSTINE [Suspect]
     Active Substance: LOMUSTINE
     Indication: Isocitrate dehydrogenase gene mutation
     Dosage: UNK (THERAPY DURATION: 8.8 MONTHS)
     Route: 065
  8. LOMUSTINE [Suspect]
     Active Substance: LOMUSTINE
     Indication: Oligodendroglioma
  9. VINCRISTINE [Suspect]
     Active Substance: VINCRISTINE
     Indication: Isocitrate dehydrogenase gene mutation
     Dosage: UNK (THERAPY DURATION: 8.8 MONTHS)
     Route: 065
  10. VINCRISTINE [Suspect]
     Active Substance: VINCRISTINE
     Indication: Oligodendroglioma
  11. PEMBROLIZUMAB [Suspect]
     Active Substance: PEMBROLIZUMAB
     Indication: Isocitrate dehydrogenase gene mutation
     Dosage: UNK (THERAPY DURATION: 8.8 MONTHS)
     Route: 065
  12. PEMBROLIZUMAB [Suspect]
     Active Substance: PEMBROLIZUMAB
     Indication: Oligodendroglioma

REACTIONS (5)
  - Leukopenia [Unknown]
  - Abdominal pain [Unknown]
  - Diarrhoea [Unknown]
  - Myalgia [Unknown]
  - Arthralgia [Unknown]
